FAERS Safety Report 7458730-3 (Version None)
Quarter: 2011Q2

REPORT INFORMATION
  Report Type: 
  Country: None (occurrence: None)
  Receive Date: 20110504
  Receipt Date: 20100713
  Transmission Date: 20111010
  Serious: No
  Sender: FDA-Public Use
  Company Number: US-SANOFI-AVENTIS-2010SA040900

PATIENT
  Age: 63 Year
  Sex: Female
  Weight: 113.39 kg

DRUGS (7)
  1. ZETIA [Concomitant]
     Dates: start: 20090102
  2. LANTUS [Suspect]
     Indication: TYPE 2 DIABETES MELLITUS
     Dates: start: 20090101
  3. APIDRA [Suspect]
     Indication: TYPE 2 DIABETES MELLITUS
     Dosage: TOOK 60-70 UNITS PRN.
     Route: 065
     Dates: start: 20090101
  4. PLAVIX [Concomitant]
     Indication: THROMBOSIS PROPHYLAXIS
     Dates: start: 20090102
  5. METFORMIN [Concomitant]
     Dates: start: 20090102
  6. ATORVASTATIN [Concomitant]
     Dates: start: 20090102
  7. DIURETICS [Concomitant]
     Dates: start: 20090101

REACTIONS (5)
  - WEIGHT INCREASED [None]
  - FEELING HOT [None]
  - DIZZINESS [None]
  - HYPOTHYROIDISM [None]
  - BLOOD GLUCOSE INCREASED [None]
